FAERS Safety Report 13070676 (Version 1)
Quarter: 2016Q4

REPORT INFORMATION
  Report Type: Spontaneous
  Country: FR (occurrence: FR)
  Receive Date: 20161229
  Receipt Date: 20161229
  Transmission Date: 20170207
  Serious: Yes (Life-Threatening, Other)
  Sender: FDA-Public Use
  Company Number: FR-BRISTOL-MYERS SQUIBB COMPANY-BMS-2016-109572

PATIENT
  Age: 33 Year
  Sex: Male

DRUGS (1)
  1. OPDIVO [Suspect]
     Active Substance: NIVOLUMAB
     Indication: HODGKIN^S DISEASE
     Dosage: UNK
     Route: 065
     Dates: start: 201503, end: 201506

REACTIONS (10)
  - Cholestasis [Unknown]
  - Colitis [Unknown]
  - Multiple organ dysfunction syndrome [Unknown]
  - Pancreatitis [Unknown]
  - Rhabdomyolysis [Unknown]
  - Graft versus host disease [Unknown]
  - Hypothyroidism [Unknown]
  - Myositis [Unknown]
  - Myocarditis [Unknown]
  - Renal failure [Unknown]
